FAERS Safety Report 9267496 (Version 4)
Quarter: 2013Q4

REPORT INFORMATION
  Report Type: Report from Study
  Country: US (occurrence: US)
  Receive Date: 20130502
  Receipt Date: 20131008
  Transmission Date: 20140711
  Serious: Yes (Hospitalization)
  Sender: FDA-Public Use
  Company Number: US-JNJFOC-20130414894

PATIENT
  Age: 17 Year
  Sex: Female
  Weight: 49.2 kg

DRUGS (9)
  1. REMICADE [Suspect]
     Indication: COLITIS ULCERATIVE
     Route: 042
     Dates: start: 20081101
  2. HUMIRA [Concomitant]
     Route: 065
     Dates: start: 20081010
  3. ESOMEPRAZOLE MAGNESIUM TRIHYDRATE [Concomitant]
     Route: 065
  4. FLUOXETINE HYDROCHLORIDE [Concomitant]
     Route: 065
  5. PROBIOTICS [Concomitant]
     Route: 065
  6. NEURONTIN [Concomitant]
     Route: 065
  7. CLOBETASOL [Concomitant]
     Dosage: STRENGTH: 0.5 %
     Route: 061
  8. ONDANSETRON [Concomitant]
     Route: 065
  9. OXYCODONE [Concomitant]
     Route: 065

REACTIONS (3)
  - Abscess [Recovered/Resolved with Sequelae]
  - Anal fistula [Recovered/Resolved with Sequelae]
  - Malnutrition [Recovered/Resolved]
